FAERS Safety Report 4701153-8 (Version None)
Quarter: 2005Q2

REPORT INFORMATION
  Report Type: 
  Country: None (occurrence: None)
  Receive Date: 20050628
  Receipt Date: 20050621
  Transmission Date: 20051028
  Serious: Yes (Hospitalization)
  Sender: FDA-Public Use
  Company Number: S0502759

PATIENT
  Age: 61 Year
  Sex: Male

DRUGS (5)
  1. ONDANSETRON [Suspect]
     Indication: COLORECTAL CANCER
     Route: 042
  2. DEXAMETHASONE [Suspect]
     Indication: COLORECTAL CANCER
     Route: 042
  3. IRINOTECAN [Suspect]
     Indication: COLORECTAL CANCER
     Dosage: 250MG PER DAY
     Route: 042
     Dates: start: 20050506
  4. FLUOROURACIL [Suspect]
     Indication: COLORECTAL CANCER
     Route: 042
  5. CALCIUM FOLINATE [Suspect]
     Indication: COLORECTAL CANCER
     Route: 042

REACTIONS (1)
  - MYOCARDIAL INFARCTION [None]
